FAERS Safety Report 5101378-6 (Version None)
Quarter: 2006Q3

REPORT INFORMATION
  Report Type: 
  Country: None (occurrence: None)
  Receive Date: 20060906
  Receipt Date: 20060825
  Transmission Date: 20061208
  Serious: Yes (Death, Hospitalization)
  Sender: FDA-Public Use
  Company Number: GXKR2006HU05317

PATIENT
  Age: 74 Year
  Sex: Female

DRUGS (2)
  1. THIAMAZOLE (NGX) (THIAMAZOLE) [Suspect]
     Indication: HYPERTHYROIDISM
     Dosage: 10 MG DAILY
  2. COUMARIN (COUMARIN) [Suspect]
     Indication: ATRIAL FIBRILLATION

REACTIONS (13)
  - APLASTIC ANAEMIA [None]
  - ATRIAL FIBRILLATION [None]
  - BLOOD URINE PRESENT [None]
  - BONE MARROW FAILURE [None]
  - CARDIAC FAILURE [None]
  - DYSPHAGIA [None]
  - HAEMATOMA [None]
  - HAEMORRHAGE [None]
  - MELAENA [None]
  - MUCOUS MEMBRANE DISORDER [None]
  - OVERDOSE [None]
  - PHARYNGOLARYNGEAL PAIN [None]
  - PNEUMONIA [None]
